FAERS Safety Report 10750208 (Version 3)
Quarter: 2015Q1

REPORT INFORMATION
  Report Type: Report from Study
  Country: CN (occurrence: CN)
  Receive Date: 20150129
  Receipt Date: 20150219
  Transmission Date: 20150721
  Serious: Yes (Death, Other)
  Sender: FDA-Public Use
  Company Number: PHHY2015CN010102

PATIENT
  Sex: Male

DRUGS (1)
  1. GLIVEC [Suspect]
     Active Substance: IMATINIB MESYLATE
     Indication: GASTROINTESTINAL STROMAL TUMOUR
     Dosage: 600 MG, QD
     Route: 048
     Dates: start: 201109, end: 201501

REACTIONS (6)
  - Malnutrition [Fatal]
  - Fatigue [Fatal]
  - Haemoglobin decreased [Unknown]
  - Eating disorder [Fatal]
  - Organ failure [Fatal]
  - Platelet count decreased [Unknown]
